FAERS Safety Report 9768480 (Version 1)
Quarter: 2013Q4

REPORT INFORMATION
  Report Type: Spontaneous
  Country: US (occurrence: US)
  Receive Date: 20131217
  Receipt Date: 20131217
  Transmission Date: 20140711
  Serious: Yes (Death, Hospitalization)
  Sender: FDA-Public Use
  Company Number: PHHY2013US144748

PATIENT
  Age: 80 Year
  Sex: Male

DRUGS (16)
  1. ALLOPURINOL [Suspect]
     Indication: GOUT
     Dosage: 300 MG, UNK
     Route: 048
  2. TRIAMTERENE/HYDROCHLOROTHIAZIDE [Suspect]
     Dosage: 1 DF, QOD
     Route: 048
  3. IRBESARTAN [Suspect]
     Dosage: 300 MG, UNK
     Route: 048
  4. GLYBURIDE [Suspect]
     Dosage: 2.5 MG, BID
     Route: 048
  5. FLUTICASONE [Concomitant]
     Dosage: 0.11 MG, DAILY
  6. FLUTICASONE PROPIONATE [Concomitant]
     Dosage: 1 DF, UNK
  7. MONTELUKAST [Concomitant]
     Dosage: 10 MG, DAILY
     Route: 048
  8. AMLODIPINE [Concomitant]
     Dosage: 5 MG, DAILY
     Route: 048
  9. ALBUTEROL [Concomitant]
     Dosage: 90 MCG 2 PUFFS EVERY SIX HOURS AS NECESSARY
  10. TERAZOSIN [Concomitant]
     Dosage: 2 MG, QHS
     Route: 048
  11. SIMVASTATIN [Concomitant]
     Dosage: 40 MG, UNK
     Route: 048
  12. AZELASTINE [Concomitant]
     Dosage: 0.137 MG, PRN
  13. MECLIZINE [Concomitant]
     Dosage: 25 MG, UNK
     Route: 048
  14. FEXOFENADINE [Concomitant]
     Dosage: 150 MG QPM
     Route: 048
  15. CYCLOBENZAPRINE [Concomitant]
     Dosage: 10 MG EVERY DAY AT BED TIME PRN
     Route: 048
  16. HYDROCODONE/ACETAMINOPHEN          /00607101/ [Concomitant]
     Dosage: 02 DF, PRN
     Route: 048

REACTIONS (34)
  - Death [Fatal]
  - Drug reaction with eosinophilia and systemic symptoms [Recovering/Resolving]
  - Diarrhoea [Recovering/Resolving]
  - Wheezing [Recovering/Resolving]
  - Rash [Recovering/Resolving]
  - Pruritus generalised [Recovering/Resolving]
  - Dysgeusia [Recovering/Resolving]
  - Decreased appetite [Recovering/Resolving]
  - Malaise [Recovering/Resolving]
  - Chills [Recovering/Resolving]
  - Dysuria [Recovering/Resolving]
  - Nausea [Recovering/Resolving]
  - Hypophagia [Recovering/Resolving]
  - Skin exfoliation [Recovering/Resolving]
  - Erythema [Recovering/Resolving]
  - Skin lesion [Recovering/Resolving]
  - Atelectasis [Recovering/Resolving]
  - Pulmonary fibrosis [Recovering/Resolving]
  - Ascites [Recovering/Resolving]
  - Hepatitis [Recovering/Resolving]
  - Eosinophilia [Recovering/Resolving]
  - Leukocytosis [Recovering/Resolving]
  - Lymphocytic infiltration [Recovering/Resolving]
  - Vasculitis [Recovering/Resolving]
  - Respiratory arrest [Unknown]
  - Respiratory distress [Unknown]
  - Hypotension [Unknown]
  - Shock [Unknown]
  - Cerebrovascular accident [Unknown]
  - Dehydration [Recovering/Resolving]
  - Muscular weakness [Recovering/Resolving]
  - Hyperuricaemia [Recovering/Resolving]
  - Renal failure acute [Recovering/Resolving]
  - Oedema [Recovering/Resolving]
